FAERS Safety Report 17451017 (Version 1)
Quarter: 2020Q1

REPORT INFORMATION
  Report Type: Spontaneous
  Country: US (occurrence: US)
  Receive Date: 20200222
  Receipt Date: 20200222
  Transmission Date: 20200409
  Serious: Yes (Hospitalization, Other)
  Sender: FDA-Public Use
  Company Number: None

PATIENT
  Age: 65 Year
  Sex: Female
  Weight: 103.95 kg

DRUGS (12)
  1. METFORMIN HCL ER 500 MG [Suspect]
     Active Substance: METFORMIN HYDROCHLORIDE
     Indication: DIABETES MELLITUS
     Dates: start: 20181218, end: 20200216
  2. GABEPENTIN [Concomitant]
     Active Substance: GABAPENTIN
  3. VITAMIN B12 [Concomitant]
     Active Substance: CYANOCOBALAMIN
  4. PANTOPRAZOLE [Concomitant]
     Active Substance: PANTOPRAZOLE
  5. ZIPRASIDONE. [Concomitant]
     Active Substance: ZIPRASIDONE
  6. LISINOPRIL. [Concomitant]
     Active Substance: LISINOPRIL
  7. ASPIRIN. [Concomitant]
     Active Substance: ASPIRIN
  8. FAMOTIDINE. [Concomitant]
     Active Substance: FAMOTIDINE
  9. EFFEXOR [Concomitant]
     Active Substance: VENLAFAXINE HYDROCHLORIDE
  10. PRAZSOSIN [Concomitant]
  11. DOMPERIDONE [Concomitant]
     Active Substance: DOMPERIDONE
  12. PRAVASTATIN. [Concomitant]
     Active Substance: PRAVASTATIN

REACTIONS (9)
  - Muscle spasms [None]
  - Disorientation [None]
  - Dysphagia [None]
  - Abdominal pain upper [None]
  - Confusional state [None]
  - Headache [None]
  - Abdominal pain [None]
  - Diarrhoea [None]
  - Polyp [None]

NARRATIVE: CASE EVENT DATE: 20200216
